FAERS Safety Report 23627703 (Version 1)
Quarter: 2024Q1

REPORT INFORMATION
  Report Type: Spontaneous
  Country: US (occurrence: US)
  Receive Date: 20240313
  Receipt Date: 20240313
  Transmission Date: 20240410
  Serious: Yes (Death, Life-Threatening, Hospitalization)
  Sender: FDA-Public Use
  Company Number: US-MYLANLABS-2024M1022911

PATIENT
  Age: 63 Year
  Sex: Male

DRUGS (1)
  1. DEXAMETHASONE [Suspect]
     Active Substance: DEXAMETHASONE
     Indication: Nervous system disorder
     Dosage: UNK, HIGH-DOSE
     Route: 065

REACTIONS (7)
  - Disseminated strongyloidiasis [Fatal]
  - Acute respiratory failure [Unknown]
  - Septic shock [Unknown]
  - Pneumonia [Unknown]
  - Small intestinal obstruction [Unknown]
  - Intestinal ischaemia [Unknown]
  - Malabsorption [Unknown]
